FAERS Safety Report 7347521-X (Version None)
Quarter: 2011Q1

REPORT INFORMATION
  Report Type: 
  Country: None (occurrence: None)
  Receive Date: 20110311
  Receipt Date: 20110303
  Transmission Date: 20110831
  Serious: Yes (Death, Life-Threatening, Hospitalization)
  Sender: FDA-Public Use
  Company Number: DE-BRISTOL-MYERS SQUIBB COMPANY-15052285

PATIENT
  Age: 66 Year
  Sex: Male

DRUGS (14)
  1. CITALOPRAM [Concomitant]
     Indication: PROPHYLAXIS
     Route: 048
     Dates: start: 20100311
  2. AQUAPHOR [Concomitant]
     Indication: OEDEMA
     Route: 048
     Dates: start: 20100311
  3. CLEXANE [Concomitant]
     Indication: THROMBOSIS PROPHYLAXIS
     Route: 058
     Dates: start: 20100311
  4. DURAGESIC-100 [Concomitant]
     Indication: PAIN
     Route: 062
     Dates: start: 20100312
  5. DEXAMETHASONE [Concomitant]
     Indication: PREMEDICATION
     Route: 042
  6. FENISTIL [Concomitant]
     Indication: PREMEDICATION
     Route: 042
  7. TAXOL [Suspect]
     Indication: NON-SMALL CELL LUNG CANCER
     Dosage: 1 BOTTLE:300MG . WITHDRAWN FROM STUDY ON 01-APR-2010
     Route: 042
     Dates: start: 20100330, end: 20100330
  8. NOVALGIN [Concomitant]
     Indication: PAIN
     Dosage: 1DF=120GTT[30GTT 4IN1DY]
     Route: 048
     Dates: start: 20100311
  9. GRANISETRON HCL [Concomitant]
     Indication: PREMEDICATION
     Route: 042
  10. PANTOZOL [Concomitant]
     Indication: PROPHYLAXIS AGAINST GASTROINTESTINAL ULCER
     Dosage: DOSAGE:40MG
     Route: 048
     Dates: start: 20100311
  11. PASPERTIN [Concomitant]
     Indication: PROPHYLAXIS OF NAUSEA AND VOMITING
     Dosage: 1DF=20GTT
     Route: 048
     Dates: start: 20100311
  12. MORPHINE [Concomitant]
     Indication: PAIN
     Dosage: 12-25MAR10(14D):ORAL 25-31MAR10 (7D):IV
     Route: 048
     Dates: start: 20100312, end: 20100331
  13. HYALURONIDASE [Concomitant]
     Indication: EXTRAVASATION
     Route: 058
     Dates: start: 20100330, end: 20100330
  14. SPIRIVA [Concomitant]
     Indication: CHRONIC OBSTRUCTIVE PULMONARY DISEASE
     Route: 048
     Dates: start: 20100311

REACTIONS (2)
  - NEOPLASM MALIGNANT [None]
  - RENAL FAILURE ACUTE [None]
